FAERS Safety Report 15267360 (Version 1)
Quarter: 2018Q3

REPORT INFORMATION
  Report Type: Spontaneous
  Country: US (occurrence: US)
  Receive Date: 20180724
  Receipt Date: 20180724
  Transmission Date: 20181010
  Serious: Yes (Disabling)
  Sender: FDA-Public Use
  Company Number: None

PATIENT
  Age: 59 Year
  Sex: Female
  Weight: 92.25 kg

DRUGS (2)
  1. CLONIDINE HCL [Concomitant]
     Active Substance: CLONIDINE HYDROCHLORIDE
  2. VALSARTAN TABS 320MG GENERIC FOR : DIOVAN TABS [Suspect]
     Active Substance: VALSARTAN
     Indication: HYPERTENSION
     Dosage: ?          QUANTITY:1 TABLET(S);?
     Route: 048
     Dates: start: 20180710, end: 20180724

REACTIONS (7)
  - Dyspnoea [None]
  - Hypertension [None]
  - Product impurity [None]
  - Headache [None]
  - Abdominal pain upper [None]
  - Poor quality drug administered [None]
  - Gastrointestinal pain [None]

NARRATIVE: CASE EVENT DATE: 20180724
